FAERS Safety Report 15416578 (Version 1)
Quarter: 2018Q3

REPORT INFORMATION
  Report Type: Spontaneous
  Country: US (occurrence: US)
  Receive Date: 20180924
  Receipt Date: 20180924
  Transmission Date: 20181010
  Serious: Yes (Death, Hospitalization, Other)
  Sender: FDA-Public Use
  Company Number: US-009507513-1807USA003309

PATIENT
  Age: 42 Year
  Sex: Female
  Weight: 98.87 kg

DRUGS (2)
  1. OLAPARIB. [Suspect]
     Active Substance: OLAPARIB
     Indication: OVARIAN CANCER
     Dosage: 300 MG, BID
     Route: 048
     Dates: start: 20180428, end: 20180705
  2. KEYTRUDA [Suspect]
     Active Substance: PEMBROLIZUMAB
     Dosage: 200 MG, ONE CYCLE
     Dates: start: 20180428

REACTIONS (3)
  - Malignant neoplasm progression [Fatal]
  - Clostridium difficile infection [Unknown]
  - Enteritis [Unknown]

NARRATIVE: CASE EVENT DATE: 20180504
